FAERS Safety Report 11781547 (Version 1)
Quarter: 2015Q4

REPORT INFORMATION
  Report Type: Spontaneous
  Country: US (occurrence: US)
  Receive Date: 20151126
  Receipt Date: 20151126
  Transmission Date: 20160305
  Serious: No
  Sender: FDA-Public Use
  Company Number: US-PHARSAFER ASSOCIATES LTD-RAP-0263-2014

PATIENT
  Sex: Male
  Weight: 16.6 kg

DRUGS (1)
  1. PROCYSBI DELAYED-RELEASE [Suspect]
     Active Substance: CYSTEAMINE BITARTRATE
     Indication: CYSTINOSIS
     Dosage: 375 MG, BID
     Route: 048

REACTIONS (2)
  - Vomiting [Not Recovered/Not Resolved]
  - Skin odour abnormal [Not Recovered/Not Resolved]
